FAERS Safety Report 18176218 (Version 3)
Quarter: 2021Q2

REPORT INFORMATION
  Report Type: Spontaneous
  Country: None (occurrence: US)
  Receive Date: 20200820
  Receipt Date: 20210514
  Transmission Date: 20210717
  Serious: Yes (Other)
  Sender: FDA-Public Use
  Company Number: US-GLAXOSMITHKLINE-US2020165951

PATIENT
  Sex: Male

DRUGS (6)
  1. RANITIDINE. [Suspect]
     Active Substance: RANITIDINE
     Dosage: 300 MG, QD
     Route: 065
     Dates: start: 201606, end: 201911
  2. RANITIDINE. [Suspect]
     Active Substance: RANITIDINE
     Indication: GASTROOESOPHAGEAL REFLUX DISEASE
     Dosage: 150 MG PRESCRIPTION
     Route: 065
     Dates: start: 201606, end: 201911
  3. RANITIDINE. [Suspect]
     Active Substance: RANITIDINE
     Indication: GASTROOESOPHAGEAL REFLUX DISEASE
     Dosage: 150 MG PRESCRIPTION
     Route: 065
     Dates: start: 201606, end: 201911
  4. RANITIDINE. [Suspect]
     Active Substance: RANITIDINE
     Dosage: UNK
  5. RANITIDINE. [Suspect]
     Active Substance: RANITIDINE
     Dosage: 300 MG, QD
     Route: 065
     Dates: start: 201606, end: 201911
  6. RANITIDINE. [Suspect]
     Active Substance: RANITIDINE
     Dates: start: 20160615, end: 20191115

REACTIONS (2)
  - Skin cancer [Unknown]
  - Prostate cancer [Unknown]
